FAERS Safety Report 5009550-0 (Version None)
Quarter: 2006Q2

REPORT INFORMATION
  Report Type: 
  Country: None (occurrence: None)
  Receive Date: 20060522
  Receipt Date: 20060512
  Transmission Date: 20061013
  Serious: Yes (Hospitalization, Other)
  Sender: FDA-Public Use
  Company Number: 2006063633

PATIENT
  Age: 22 Year
  Sex: Female
  Weight: 49.8957 kg

DRUGS (2)
  1. BENADRYL [Suspect]
     Indication: SUICIDE ATTEMPT
     Dosage: ONCE, ORAL
     Route: 048
     Dates: start: 20060510, end: 20060510
  2. ASPIRIN [Concomitant]

REACTIONS (3)
  - INCORRECT DOSE ADMINISTERED [None]
  - NERVE INJURY [None]
  - SUICIDE ATTEMPT [None]
